FAERS Safety Report 9651982 (Version 1)
Quarter: 2013Q4

REPORT INFORMATION
  Report Type: Spontaneous
  Country: US (occurrence: None)
  Receive Date: 20131028
  Receipt Date: 20131028
  Transmission Date: 20140711
  Serious: No
  Sender: FDA-Public Use
  Company Number: None

PATIENT
  Age: 77 Year
  Sex: Female
  Weight: 72.58 kg

DRUGS (1)
  1. LIPTRUZET [Suspect]
     Indication: HYPERLIPIDAEMIA
     Dosage: 1 TABLET
     Route: 048
     Dates: start: 20131011, end: 20131018

REACTIONS (4)
  - Influenza like illness [None]
  - Urinary retention [None]
  - Pyelonephritis [None]
  - Urinary tract infection [None]
